FAERS Safety Report 23384574 (Version 4)
Quarter: 2024Q3

REPORT INFORMATION
  Report Type: Spontaneous
  Country: US (occurrence: US)
  Receive Date: 20240109
  Receipt Date: 20240708
  Transmission Date: 20241017
  Serious: No
  Sender: PFIZER
  Company Number: US-PFIZER INC-PV202400001646

PATIENT
  Age: 12 Year
  Sex: Male
  Weight: 45.351 kg

DRUGS (4)
  1. LITFULO [Suspect]
     Active Substance: RITLECITINIB TOSYLATE
     Indication: Alopecia
     Dosage: 50 MG, 1X/DAY
     Dates: start: 202312
  2. BIOTIN [Concomitant]
     Active Substance: BIOTIN
     Dosage: UNK
  3. LONITEN [Concomitant]
     Active Substance: MINOXIDIL
     Indication: Hair growth abnormal
     Dosage: UNK
  4. ALLEGRA [Concomitant]
     Active Substance: FEXOFENADINE HYDROCHLORIDE
     Indication: Eczema

REACTIONS (3)
  - Emotional disorder [Unknown]
  - Malaise [Unknown]
  - Discomfort [Unknown]
